FAERS Safety Report 5028374-1 (Version None)
Quarter: 2006Q2

REPORT INFORMATION
  Report Type: 
  Country: None (occurrence: None)
  Receive Date: 20060613
  Receipt Date: 20060531
  Transmission Date: 20061013
  Serious: Yes (Hospitalization, Other)
  Sender: FDA-Public Use
  Company Number: 2006071462

PATIENT
  Age: 57 Year
  Sex: Female
  Weight: 98.4306 kg

DRUGS (1)
  1. CELEBREX [Suspect]
     Indication: ILL-DEFINED DISORDER
     Dosage: 200 MG (100 MG, 2 IN 1 D), ORAL
     Route: 048
     Dates: start: 20040701, end: 20041101

REACTIONS (3)
  - CEREBROVASCULAR ACCIDENT [None]
  - HEART RATE INCREASED [None]
  - HEART RATE IRREGULAR [None]
